FAERS Safety Report 7409319-3 (Version None)
Quarter: 2011Q1

REPORT INFORMATION
  Report Type: 
  Country: None (occurrence: None)
  Receive Date: 20110301
  Receipt Date: 20100305
  Transmission Date: 20110831
  Serious: Yes (Hospitalization, Other)
  Sender: FDA-Public Use
  Company Number: RB-04067-2010

PATIENT
  Sex: Female

DRUGS (2)
  1. SUBUTEX [Suspect]
     Indication: DRUG DEPENDENCE
     Dosage: UNIT DOSE KNOWN TRANSPLACENTAL, UNIT DOSE KNOWN, TRANSMAMMARY
     Route: 064
     Dates: end: 20100212
  2. SUBUTEX [Suspect]
     Indication: DRUG DEPENDENCE
     Dosage: UNIT DOSE KNOWN TRANSPLACENTAL, UNIT DOSE KNOWN, TRANSMAMMARY
     Route: 064
     Dates: end: 20100212

REACTIONS (1)
  - DRUG WITHDRAWAL SYNDROME NEONATAL [None]
